FAERS Safety Report 5392279-7 (Version None)
Quarter: 2007Q3

REPORT INFORMATION
  Report Type: 
  Country: None (occurrence: None)
  Receive Date: 20070720
  Receipt Date: 20070710
  Transmission Date: 20080115
  Serious: Yes (Hospitalization)
  Sender: FDA-Public Use
  Company Number: US-AMGEN-US233860

PATIENT
  Sex: Female

DRUGS (2)
  1. ENBREL [Suspect]
     Indication: RHEUMATOID ARTHRITIS
     Route: 058
     Dates: start: 20010101
  2. METHOTREXATE [Concomitant]
     Route: 058
     Dates: start: 19750101

REACTIONS (5)
  - HOSPITALISATION [None]
  - INJECTION SITE IRRITATION [None]
  - KNEE ARTHROPLASTY [None]
  - SPINAL LAMINECTOMY [None]
  - STAPHYLOCOCCAL INFECTION [None]
